FAERS Safety Report 5392882-4 (Version None)
Quarter: 2007Q3

REPORT INFORMATION
  Report Type: 
  Country: None (occurrence: None)
  Receive Date: 20070721
  Receipt Date: 20070711
  Transmission Date: 20080115
  Serious: Yes (Other)
  Sender: FDA-Public Use
  Company Number: BR-PFIZER INC-2007057786

PATIENT
  Sex: Male
  Weight: 70 kg

DRUGS (2)
  1. VIAGRA [Suspect]
     Indication: ERECTILE DYSFUNCTION
     Dosage: TEXT:HALF OF A 50 MG TABLET
     Route: 048
  2. CAPTOPRIL [Concomitant]
     Route: 048

REACTIONS (1)
  - CAROTID ARTERY OCCLUSION [None]
